FAERS Safety Report 10189908 (Version 1)
Quarter: 2014Q2

REPORT INFORMATION
  Report Type: Spontaneous
  Country: US (occurrence: US)
  Receive Date: 20140522
  Receipt Date: 20140522
  Transmission Date: 20141212
  Serious: Yes (Other)
  Sender: FDA-Public Use
  Company Number: US-SANOFI-AVENTIS-2013SA077733

PATIENT
  Age: 67 Year
  Sex: Female
  Weight: 90.71 kg

DRUGS (2)
  1. LANTUS SOLOSTAR [Suspect]
     Indication: DIABETES MELLITUS
     Dosage: 3 UNITS IN MORNING 7 UNITS IN EVENING
     Route: 065
     Dates: start: 20130521
  2. SOLOSTAR [Concomitant]

REACTIONS (4)
  - Hypoglycaemia [Unknown]
  - Blood glucose increased [Unknown]
  - Glycosylated haemoglobin increased [Unknown]
  - Drug ineffective [Unknown]
